FAERS Safety Report 23409374 (Version 5)
Quarter: 2024Q1

REPORT INFORMATION
  Report Type: Report from Study
  Country: IT (occurrence: None)
  Receive Date: 20240117
  Receipt Date: 20240327
  Transmission Date: 20240410
  Serious: Yes (Hospitalization)
  Sender: FDA-Public Use
  Company Number: 2022A416721

PATIENT
  Age: 55 Year
  Sex: Female
  Weight: 70 kg

DRUGS (79)
  1. FULVESTRANT [Suspect]
     Active Substance: FULVESTRANT
     Indication: HER2 positive breast cancer
     Dosage: 500 MG TIW (MOST RECENT DOSE PRIOR TO AE 31 DEC 2021)
     Route: 023
     Dates: start: 20210521, end: 20211231
  2. RIBOCICLIB [Suspect]
     Active Substance: RIBOCICLIB
     Indication: HER2 positive breast cancer
     Dosage: 200MG (MOST RECENT DOSE PRIOR TO AE 14 JAN 2022)200.0MG UNKNOWN
     Route: 048
     Dates: start: 20210618, end: 20220114
  3. EXEMESTANE [Suspect]
     Active Substance: EXEMESTANE
     Indication: HER2 positive breast cancer
     Dosage: 25 MG QD (MOST RECENT DOSE PRIOR TO AE 09 OCT 2020)
     Route: 048
     Dates: start: 20180713, end: 20201009
  4. TRASTUZUMAB [Suspect]
     Active Substance: TRASTUZUMAB
     Indication: HER2 positive breast cancer
     Dosage: 8 MG/KG, Q3W (MOST RECENT DOSE PRIOR TO THE EVENT: 09 DEC 2017, 27 MAY 2022)
     Route: 042
     Dates: start: 20171118, end: 20171118
  5. TRASTUZUMAB [Suspect]
     Active Substance: TRASTUZUMAB
     Indication: HER2 positive breast cancer
     Dosage: 6 MG/KG, Q3W
     Route: 042
     Dates: start: 20171209, end: 20210521
  6. TRASTUZUMAB [Suspect]
     Active Substance: TRASTUZUMAB
     Indication: HER2 positive breast cancer
     Dosage: 420 MG, Q3W
     Route: 042
     Dates: start: 20220527, end: 20220729
  7. TRASTUZUMAB [Suspect]
     Active Substance: TRASTUZUMAB
     Indication: HER2 positive breast cancer
     Route: 042
     Dates: start: 20220617, end: 20220729
  8. TRASTUZUMAB [Suspect]
     Active Substance: TRASTUZUMAB
     Indication: HER2 positive breast cancer
     Route: 042
     Dates: start: 20220527, end: 20220527
  9. CAPECITABINE [Suspect]
     Active Substance: CAPECITABINE
     Indication: HER2 positive breast cancer
     Dosage: 500 MG OTHER
     Route: 048
     Dates: start: 20220805, end: 20220824
  10. CAPECITABINE [Suspect]
     Active Substance: CAPECITABINE
     Indication: HER2 positive breast cancer
     Dosage: 500 MG OTHER
     Route: 048
     Dates: start: 20221205, end: 20230112
  11. DOXORUBICIN [Suspect]
     Active Substance: DOXORUBICIN
     Indication: HER2 positive breast cancer
     Dosage: 60 MG, QW
     Dates: start: 20220315, end: 20220520
  12. DOXORUBICIN [Suspect]
     Active Substance: DOXORUBICIN
     Indication: HER2 positive breast cancer
     Dosage: 60 MG/KG Q3W (MOST RECENT DOSE PRIOR TO AE 20 MAY 2022)
     Route: 042
     Dates: start: 20220315, end: 20220520
  13. CYCLOPHOSPHAMIDE [Suspect]
     Active Substance: CYCLOPHOSPHAMIDE
     Indication: HER2 positive breast cancer
     Dosage: 600 MG/KG, Q3W (MOST RECENT DOSE PRIOR TO AE 20 MAY 2022)
     Route: 042
     Dates: start: 20220315, end: 20220520
  14. CYCLOPHOSPHAMIDE [Suspect]
     Active Substance: CYCLOPHOSPHAMIDE
     Indication: HER2 positive breast cancer
     Dosage: 600 MG/KG, Q3W (MOST RECENT DOSE PRIOR TO AE 20 MAY 2022)
     Route: 042
     Dates: start: 20220315
  15. DOCETAXEL [Suspect]
     Active Substance: DOCETAXEL\DOCETAXEL ANHYDROUS
     Indication: HER2 positive breast cancer
     Dosage: MOST RECENT DOSE WAS RECIVED ON 14/APR/2018
     Route: 042
     Dates: start: 20171118, end: 20180210
  16. DOCETAXEL [Suspect]
     Active Substance: DOCETAXEL\DOCETAXEL ANHYDROUS
     Indication: HER2 positive breast cancer
     Route: 042
     Dates: start: 20180303, end: 20180414
  17. PERTUZUMAB [Suspect]
     Active Substance: PERTUZUMAB
     Indication: HER2 positive breast cancer
     Dosage: 420 MG, Q3W
     Route: 042
     Dates: start: 20171209, end: 20200918
  18. PERTUZUMAB [Suspect]
     Active Substance: PERTUZUMAB
     Indication: HER2 positive breast cancer
     Dosage: 840 MG Q3W (MOST RECENT DOSE PRIOR TO THE EVENT: 09 DEC 2017)
     Route: 042
     Dates: start: 20171118, end: 20171118
  19. PEMBROLIZUMAB [Suspect]
     Active Substance: PEMBROLIZUMAB
     Indication: HER2 positive breast cancer
     Dosage: 200 MG Q3W (MOST RECENT DOSE PRIOR TO AE 25 FEB 2022)
     Route: 042
     Dates: start: 20220204, end: 20220225
  20. PEMBROLIZUMAB [Suspect]
     Active Substance: PEMBROLIZUMAB
     Indication: HER2 positive breast cancer
     Dosage: 200 MG Q3W (MOST RECENT DOSE PRIOR TO AE 25 FEB 2022)
     Route: 042
     Dates: start: 20220204
  21. CARBOPLATIN [Suspect]
     Active Substance: CARBOPLATIN
     Indication: HER2 positive breast cancer
     Dosage: UNK, Q3W (MOST RECENT DOSE PRIOR TO THE EVENT: 27 MAY 2022)
     Route: 042
     Dates: start: 20220204, end: 20220225
  22. CARBOPLATIN [Suspect]
     Active Substance: CARBOPLATIN
     Indication: HER2 positive breast cancer
     Dosage: 4AUC
     Route: 042
     Dates: start: 20220527, end: 20220729
  23. GEMCITABINE [Suspect]
     Active Substance: GEMCITABINE
     Indication: HER2 positive breast cancer
     Dosage: 800 MG/KG Q3W (MOST RECENT DOSE PRIOR TO 29 JUL 2022)
     Route: 042
     Dates: start: 20220527, end: 20220729
  24. XELODA [Suspect]
     Active Substance: CAPECITABINE
     Indication: HER2 positive breast cancer
     Dosage: 0.33 - DAILY
     Route: 048
     Dates: start: 20220805, end: 20220824
  25. XELODA [Suspect]
     Active Substance: CAPECITABINE
     Indication: HER2 positive breast cancer
     Dosage: 0.5 - DAILY
     Route: 048
     Dates: start: 20221205, end: 20230112
  26. TALAZOPARIB [Suspect]
     Active Substance: TALAZOPARIB
     Indication: HER2 positive breast cancer
     Dosage: 500 MG TIW (MOST RECENT DOSE PRIOR TO AE 31 DEC 2021)
     Route: 030
     Dates: start: 20210521
  27. PERJETA [Suspect]
     Active Substance: PERTUZUMAB
     Indication: HER2 positive breast cancer
     Dosage: 500 MG TIW (MOST RECENT DOSE PRIOR TO AE 31 DEC 2021)
     Route: 030
     Dates: start: 20210521
  28. CYTOXAN [Suspect]
     Active Substance: CYCLOPHOSPHAMIDE
     Indication: HER2 positive breast cancer
     Dosage: 500 MG TIW (MOST RECENT DOSE PRIOR TO AE 31 DEC 2021)
     Route: 030
     Dates: start: 20210521, end: 20220520
  29. CYTOXAN [Suspect]
     Active Substance: CYCLOPHOSPHAMIDE
     Indication: HER2 positive breast cancer
     Route: 030
     Dates: start: 20220315, end: 20220520
  30. TAXOTERE [Suspect]
     Active Substance: DOCETAXEL
     Indication: HER2 positive breast cancer
     Dosage: 500 MG TIW (MOST RECENT DOSE PRIOR TO AE 31 DEC 2021)
     Route: 030
     Dates: start: 20210521
  31. AROMASIN [Suspect]
     Active Substance: EXEMESTANE
     Indication: HER2 positive breast cancer
     Dosage: 500 MG TIW (MOST RECENT DOSE PRIOR TO AE 31 DEC 2021)
     Route: 030
     Dates: start: 20210521
  32. PARAPLATIN [Suspect]
     Active Substance: CARBOPLATIN
     Indication: HER2 positive breast cancer
     Dosage: 4AUC
     Route: 042
     Dates: start: 20220527, end: 20220729
  33. PARAPLATIN [Suspect]
     Active Substance: CARBOPLATIN
     Indication: HER2 positive breast cancer
     Dosage: 6AUC
     Route: 042
     Dates: start: 20220204, end: 20220225
  34. HERCEPTIN [Suspect]
     Active Substance: TRASTUZUMAB
     Indication: HER2 positive breast cancer
     Dosage: UNKNOWN
  35. GEMZAR [Suspect]
     Active Substance: GEMCITABINE HYDROCHLORIDE
     Indication: HER2 positive breast cancer
     Dosage: UNKNOWN
  36. PREDNISONE [Concomitant]
     Active Substance: PREDNISONE
     Indication: Product used for unknown indication
     Dosage: UNKNOWN
     Dates: start: 20171118, end: 20180414
  37. PREDNISONE [Concomitant]
     Active Substance: PREDNISONE
     Indication: Product used for unknown indication
     Dosage: UNKNOWN
     Dates: start: 20171118, end: 20180414
  38. PREDNISONE [Concomitant]
     Active Substance: PREDNISONE
     Indication: Product used for unknown indication
     Dosage: UNKNOWN
     Dates: start: 20171118, end: 20180414
  39. PREDNISONE [Concomitant]
     Active Substance: PREDNISONE
     Indication: Product used for unknown indication
     Dosage: UNKNOWN
     Dates: start: 20171118, end: 20180414
  40. PREDNISONE [Concomitant]
     Active Substance: PREDNISONE
     Indication: Product used for unknown indication
     Dosage: UNKNOWN
     Dates: start: 20171118, end: 20180414
  41. PREDNISONE [Concomitant]
     Active Substance: PREDNISONE
     Indication: Product used for unknown indication
     Dosage: UNKNOWN
     Dates: start: 20171118, end: 20180414
  42. PREDNISONE [Concomitant]
     Active Substance: PREDNISONE
     Indication: Product used for unknown indication
     Dosage: UNKNOWN
     Dates: start: 20171118, end: 20180414
  43. PREDNISONE [Concomitant]
     Active Substance: PREDNISONE
     Indication: Product used for unknown indication
     Dosage: UNKNOWN
     Dates: start: 20171118, end: 20180414
  44. PREDNISONE [Concomitant]
     Active Substance: PREDNISONE
     Indication: Product used for unknown indication
     Dosage: UNKNOWN
     Dates: start: 20171118, end: 20180414
  45. PREDNISONE [Concomitant]
     Active Substance: PREDNISONE
     Indication: Product used for unknown indication
     Dosage: 25 MG (ONGOING NOT CHECKED)25.0MG UNKNOWN
     Dates: start: 20171230, end: 20180503
  46. PREDNISONE [Concomitant]
     Active Substance: PREDNISONE
     Indication: Product used for unknown indication
     Dosage: 25 MG25.0MG UNKNOWN
     Dates: start: 20171117, end: 20171229
  47. ALPRAZOLAM [Concomitant]
     Active Substance: ALPRAZOLAM
     Indication: Product used for unknown indication
     Dosage: ONGOING = CHECKED
     Dates: start: 20180803
  48. LANSOPRAZOLE [Concomitant]
     Active Substance: LANSOPRAZOLE
     Indication: Product used for unknown indication
     Dosage: UNK UNKNOWN
     Dates: start: 20171208, end: 20180413
  49. LANSOPRAZOLE [Concomitant]
     Active Substance: LANSOPRAZOLE
     Indication: Product used for unknown indication
     Dosage: UNK UNKNOWN
     Dates: start: 20171118, end: 20180414
  50. DEXAMETHASONE [Concomitant]
     Active Substance: DEXAMETHASONE
     Indication: Product used for unknown indication
     Dosage: UNK UNKNOWN
     Dates: start: 20171118
  51. ECOVAL [Concomitant]
     Indication: Product used for unknown indication
     Dosage: ONGOING = CHECKED UNKNOWN
     Dates: start: 20200424
  52. LEVOSULPIRIDE [Concomitant]
     Active Substance: LEVOSULPIRIDE
     Indication: Product used for unknown indication
     Dosage: UNK
     Dates: start: 20171118, end: 20180414
  53. DECAPEPTYL [Concomitant]
     Indication: Product used for unknown indication
     Dosage: UNK UNKNOWN
     Dates: start: 20180713
  54. CETIRIZINE HYDROCHLORIDE [Concomitant]
     Active Substance: CETIRIZINE HYDROCHLORIDE
     Indication: Product used for unknown indication
     Dosage: ONGOING = CHECKED UNKNOWN
     Dates: start: 20190531
  55. CETIRIZINE HYDROCHLORIDE [Concomitant]
     Active Substance: CETIRIZINE HYDROCHLORIDE
     Indication: Product used for unknown indication
     Dosage: UNK UNKNOWN
     Dates: start: 20190531
  56. LORAZEPAM [Concomitant]
     Active Substance: LORAZEPAM
     Indication: Product used for unknown indication
     Dosage: UNK
  57. LORAZEPAM [Concomitant]
     Active Substance: LORAZEPAM
     Indication: Product used for unknown indication
     Dosage: UNK
  58. VEA LIPOGEL [Concomitant]
     Indication: Product used for unknown indication
     Dosage: ONGOING = CHECKED UNKNOWN
     Dates: start: 20190215
  59. VEA LIPOGEL [Concomitant]
     Indication: Product used for unknown indication
     Dosage: ONGOING = CHECKED UNKNOWN
     Dates: start: 20190215
  60. VEA LIPOGEL [Concomitant]
     Indication: Product used for unknown indication
     Dosage: ONGOING = CHECKED UNKNOWN
     Dates: start: 20190215
  61. VEA LIPOGEL [Concomitant]
     Indication: Product used for unknown indication
     Dosage: ONGOING = CHECKED UNKNOWN
     Dates: start: 20190215
  62. VEA LIPOGEL [Concomitant]
     Indication: Product used for unknown indication
     Dosage: ONGOING = CHECKED UNKNOWN
     Dates: start: 20190215
  63. VEA LIPOGEL [Concomitant]
     Indication: Product used for unknown indication
     Dosage: ONGOING = CHECKED UNKNOWN
     Dates: start: 20190215
  64. VEA LIPOGEL [Concomitant]
     Indication: Product used for unknown indication
     Dosage: ONGOING = CHECKED UNKNOWN
     Dates: start: 20190215
  65. VEA LIPOGEL [Concomitant]
     Indication: Product used for unknown indication
     Dosage: ONGOING = CHECKED UNKNOWN
     Dates: start: 20190215
  66. VEA LIPOGEL [Concomitant]
     Indication: Product used for unknown indication
     Dosage: ONGOING = CHECKED UNKNOWN
     Dates: start: 20190215
  67. VEA LIPOGEL [Concomitant]
     Indication: Product used for unknown indication
     Dosage: ONGOING = CHECKED UNKNOWN
     Dates: start: 20190215
  68. VEA LIPOGEL [Concomitant]
     Indication: Product used for unknown indication
     Dosage: ONGOING = CHECKED UNKNOWN
     Dates: start: 20190215
  69. VEA LIPOGEL [Concomitant]
     Indication: Product used for unknown indication
     Dosage: ONGOING = CHECKED UNKNOWN
     Dates: start: 20190215
  70. VEA LIPOGEL [Concomitant]
     Indication: Product used for unknown indication
     Dosage: ONGOING = CHECKED UNKNOWN
     Dates: start: 20190215
  71. DENOSUMAB [Concomitant]
     Active Substance: DENOSUMAB
     Indication: Product used for unknown indication
     Dosage: ONGOING = CHECKED UNKNOWN
     Dates: start: 20190315
  72. CHLORPHENIRAMINE MALEATE [Concomitant]
     Active Substance: CHLORPHENIRAMINE MALEATE
     Indication: Product used for unknown indication
     Dosage: UNK UNKNOWN
     Dates: start: 20171118
  73. CHLORPHENIRAMINE MALEATE [Concomitant]
     Active Substance: CHLORPHENIRAMINE MALEATE
     Indication: Product used for unknown indication
     Dosage: UNK UNKNOWN
     Dates: start: 20171118
  74. ONDANSETRON [Concomitant]
     Active Substance: ONDANSETRON
     Indication: Product used for unknown indication
     Dosage: ONGOING = CHECKED
     Dates: start: 20190531
  75. ONDANSETRON [Concomitant]
     Active Substance: ONDANSETRON
     Indication: Product used for unknown indication
     Dosage: UNK
     Dates: start: 20190531
  76. LOPERAMIDE [Concomitant]
     Active Substance: LOPERAMIDE
     Indication: Product used for unknown indication
     Dosage: ONGOING = CHECKED
     Dates: start: 20190531
  77. LOPERAMIDE [Concomitant]
     Active Substance: LOPERAMIDE
     Indication: Product used for unknown indication
     Dosage: UNK
     Dates: start: 20190531
  78. DEXAMETHASONE SODIUM PHOSPHATE [Concomitant]
     Active Substance: DEXAMETHASONE PHOSPHATE\DEXAMETHASONE SODIUM PHOSPHATE
     Indication: Product used for unknown indication
     Dosage: ONGOING = CHECKED
     Dates: start: 20190531
  79. DEXAMETHASONE SODIUM PHOSPHATE [Concomitant]
     Active Substance: DEXAMETHASONE PHOSPHATE\DEXAMETHASONE SODIUM PHOSPHATE
     Indication: Product used for unknown indication
     Dosage: UNK
     Dates: start: 20190531

REACTIONS (2)
  - Pneumonia [Recovered/Resolved]
  - Diarrhoea [Recovered/Resolved]

NARRATIVE: CASE EVENT DATE: 20220819
